FAERS Safety Report 8025201-5 (Version None)
Quarter: 2012Q1

REPORT INFORMATION
  Report Type: 
  Country: None (occurrence: None)
  Receive Date: 20120105
  Receipt Date: 20111227
  Transmission Date: 20120608
  Serious: Yes (Hospitalization)
  Sender: FDA-Public Use
  Company Number: JP-GLAXOSMITHKLINE-B0771574A

PATIENT
  Sex: Male

DRUGS (3)
  1. ARASENA-A [Concomitant]
     Indication: HERPES ZOSTER
     Route: 061
     Dates: start: 20111220
  2. VALTREX [Suspect]
     Indication: HERPES ZOSTER
     Dosage: 500MG ALTERNATE DAYS
     Route: 048
     Dates: start: 20111220, end: 20111220
  3. LOXONIN [Concomitant]
     Indication: PAIN
     Route: 048
     Dates: start: 20111221

REACTIONS (5)
  - MALAISE [None]
  - PAIN [None]
  - DYSARTHRIA [None]
  - DELIRIUM [None]
  - DIARRHOEA [None]
